FAERS Safety Report 5395873-2 (Version None)
Quarter: 2007Q3

REPORT INFORMATION
  Report Type: 
  Country: None (occurrence: None)
  Receive Date: 20070724
  Receipt Date: 20070712
  Transmission Date: 20080115
  Serious: Yes (Hospitalization, Other)
  Sender: FDA-Public Use
  Company Number: US-PFIZER INC-2007028433

PATIENT
  Sex: Female
  Weight: 106.1 kg

DRUGS (2)
  1. CELEBREX [Suspect]
     Indication: PAIN
     Dates: start: 20040101, end: 20040101
  2. CELEBREX [Suspect]
     Indication: INFLAMMATION

REACTIONS (5)
  - CARDIOVASCULAR DISORDER [None]
  - HEARING IMPAIRED [None]
  - MEMORY IMPAIRMENT [None]
  - MYOCARDIAL INFARCTION [None]
  - NERVOUSNESS [None]
